FAERS Safety Report 10069321 (Version 1)
Quarter: 2014Q2

REPORT INFORMATION
  Report Type: Spontaneous
  Country: US (occurrence: US)
  Receive Date: 20140409
  Receipt Date: 20140409
  Transmission Date: 20141212
  Serious: No
  Sender: FDA-Public Use
  Company Number: US-009507513-1404USA002895

PATIENT
  Sex: Male

DRUGS (5)
  1. INTRONA [Suspect]
     Indication: HEPATITIS C
     Dosage: 3 INJECTIONS PER WEEK
     Route: 058
     Dates: start: 199604
  2. INTRONA [Suspect]
     Dosage: 1 INJECTION WEEKLY
     Route: 058
  3. ZOLOFT [Concomitant]
  4. CLORAZEPATE DIPOTASSIUM [Concomitant]
  5. LORAZEPAM [Concomitant]

REACTIONS (5)
  - Gait disturbance [Recovered/Resolved]
  - Pain in extremity [Recovered/Resolved]
  - Headache [Recovered/Resolved]
  - Dizziness [Recovered/Resolved]
  - Drug ineffective [Unknown]
